FAERS Safety Report 8975836 (Version 1)
Quarter: 2012Q4

REPORT INFORMATION
  Report Type: 
  Country: US (occurrence: US)
  Receive Date: 20121219
  Receipt Date: 20121219
  Transmission Date: 20130627
  Serious: Yes (Death, Disabling, Other)
  Sender: FDA-Public Use
  Company Number: CHPA2012US025516

PATIENT
  Age: 89 Year
  Sex: Female

DRUGS (1)
  1. EXCEDRIN ES BACK + BODY [Suspect]
     Indication: BACK PAIN
     Dosage: 1 tablet, Unk
     Route: 048

REACTIONS (4)
  - Death [Fatal]
  - Bedridden [Unknown]
  - Scoliosis [Unknown]
  - Underdose [Unknown]
